FAERS Safety Report 20080710 (Version 1)
Quarter: 2021Q4

REPORT INFORMATION
  Report Type: Spontaneous
  Country: US (occurrence: US)
  Receive Date: 20211117
  Receipt Date: 20211117
  Transmission Date: 20220303
  Serious: Yes (Hospitalization)
  Sender: FDA-Public Use
  Company Number: US-MYLANLABS-2021M1084457

PATIENT
  Age: 43 Year
  Sex: Male

DRUGS (1)
  1. RIFAMPIN [Suspect]
     Active Substance: RIFAMPIN
     Indication: Infection prophylaxis
     Dosage: 2 PILLS OF RIFAMPICIN 12H APART
     Route: 065

REACTIONS (5)
  - Type II hypersensitivity [Recovering/Resolving]
  - Acute kidney injury [Recovering/Resolving]
  - Anaemia [Recovering/Resolving]
  - Thrombocytopenia [Unknown]
  - Intentional product misuse [Unknown]
